FAERS Safety Report 8491627-9 (Version None)
Quarter: 2012Q3

REPORT INFORMATION
  Report Type: 
  Country: None (occurrence: None)
  Receive Date: 20120706
  Receipt Date: 20120628
  Transmission Date: 20120928
  Serious: No
  Sender: FDA-Public Use
  Company Number: US-BAYER-2012-065354

PATIENT
  Age: 91 Year
  Sex: Female
  Weight: 47.619 kg

DRUGS (3)
  1. CALCIUM [Concomitant]
  2. ALEVE (CAPLET) [Suspect]
     Indication: ARTHRITIS
     Dosage: 2 DF, PRN
     Route: 048
     Dates: start: 20120628, end: 20120628
  3. DETROL LA [Concomitant]

REACTIONS (1)
  - ARTHRITIS [None]
